FAERS Safety Report 12433103 (Version 2)
Quarter: 2018Q1

REPORT INFORMATION
  Report Type: Spontaneous
  Country: US (occurrence: US)
  Receive Date: 20160603
  Receipt Date: 20180316
  Transmission Date: 20180508
  Serious: Yes (Death, Hospitalization, Other)
  Sender: FDA-Public Use
  Company Number: US-ENDO PHARMACEUTICALS INC.-2016-003585

PATIENT
  Age: 59 Year
  Sex: Male
  Weight: 136.5 kg

DRUGS (3)
  1. SPIRIVA [Concomitant]
     Active Substance: TIOTROPIUM BROMIDE MONOHYDRATE
     Indication: PRODUCT USED FOR UNKNOWN INDICATION
     Dosage: UNK UNKNOWN, UNKNOWN
     Route: 065
  2. ANDROGEL [Suspect]
     Active Substance: TESTOSTERONE
     Indication: ANDROGEN REPLACEMENT THERAPY
     Dosage: UNK UNKNOWN, DAILY
     Route: 065
     Dates: start: 20100518, end: 20110331
  3. FORTESTA [Suspect]
     Active Substance: TESTOSTERONE
     Indication: ANDROGEN REPLACEMENT THERAPY
     Dosage: 7.5 MG, DAILY
     Route: 061
     Dates: start: 20101029, end: 20130731

REACTIONS (6)
  - Chronic obstructive pulmonary disease [Fatal]
  - Sudden death [Fatal]
  - Left ventricular failure [Not Recovered/Not Resolved]
  - Pulmonary hypertension [Fatal]
  - Coronary artery disease [Unknown]
  - Diaphragmatic paralysis [Fatal]

NARRATIVE: CASE EVENT DATE: 20111130
